FAERS Safety Report 7967744-6 (Version None)
Quarter: 2011Q4

REPORT INFORMATION
  Report Type: 
  Country: None (occurrence: None)
  Receive Date: 20111209
  Receipt Date: 20111209
  Transmission Date: 20120403
  Serious: Yes (Other)
  Sender: FDA-Public Use
  Company Number: None

PATIENT
  Sex: Female
  Weight: 68.038 kg

DRUGS (3)
  1. VALACYCLOVIR [Concomitant]
     Route: 048
  2. MIRENA [Suspect]
     Indication: MENORRHAGIA
     Dates: start: 20110404, end: 20111122
  3. OMEPRAZOLE [Concomitant]
     Route: 048

REACTIONS (5)
  - FATIGUE [None]
  - HYPERSOMNIA [None]
  - ANHEDONIA [None]
  - DEPRESSED MOOD [None]
  - DISTURBANCE IN ATTENTION [None]
